FAERS Safety Report 6588565-5 (Version None)
Quarter: 2010Q1

REPORT INFORMATION
  Report Type: 
  Country: None (occurrence: None)
  Receive Date: 20100218
  Receipt Date: 20091117
  Transmission Date: 20100710
  Serious: No
  Sender: FDA-Public Use
  Company Number: US-ALLERGAN-0915975US

PATIENT
  Sex: Female

DRUGS (3)
  1. BOTOX COSMETIC [Suspect]
     Indication: SKIN WRINKLING
     Dosage: UNK
     Route: 030
     Dates: start: 20091112, end: 20091112
  2. ZYRTEC [Concomitant]
     Indication: SEASONAL ALLERGY
     Dosage: UNK
  3. VITAMINS [Concomitant]
     Dosage: UNK

REACTIONS (2)
  - EYELID PTOSIS [None]
  - HEADACHE [None]
